FAERS Safety Report 5983414-8 (Version None)
Quarter: 2008Q4

REPORT INFORMATION
  Report Type: 
  Country: None (occurrence: None)
  Receive Date: 20081208
  Receipt Date: 20081127
  Transmission Date: 20090506
  Serious: Yes (Hospitalization)
  Sender: FDA-Public Use
  Company Number: JP-BAYER-200812914BYL

PATIENT
  Age: 57 Year
  Sex: Female

DRUGS (2)
  1. NEXAVAR [Suspect]
     Indication: RENAL CELL CARCINOMA
     Dosage: TOTAL DAILY DOSE: 800 MG  UNIT DOSE: 200 MG
     Route: 048
     Dates: start: 20081115
  2. ANTIHYPERTENSIVES [Concomitant]
     Indication: HYPERTENSION
     Route: 065

REACTIONS (1)
  - STEVENS-JOHNSON SYNDROME [None]
